FAERS Safety Report 21175752 (Version 11)
Quarter: 2024Q3

REPORT INFORMATION
  Report Type: Spontaneous
  Country: CA (occurrence: CA)
  Receive Date: 20220805
  Receipt Date: 20240705
  Transmission Date: 20241016
  Serious: Yes (Other)
  Sender: PFIZER
  Company Number: CA-PFIZER INC-202201033060

PATIENT
  Age: 39 Year
  Sex: Female

DRUGS (4)
  1. ABRILADA [Suspect]
     Active Substance: ADALIMUMAB-AFZB
     Indication: Colitis ulcerative
     Dosage: 1 DF 160 MG WEEK 0, 80 MG WEEK 2 THEN 40 MG Q 2 WEEKS PREFILLED PEN
     Route: 058
     Dates: start: 20220609
  2. ABRILADA [Suspect]
     Active Substance: ADALIMUMAB-AFZB
     Dosage: 40 MG, EVERY 2 WEEEKS, INDUCTION 160MG WEEK 0, 80MG WEEK 2 THEN 40MG STARTING WEEK 4, PREFILLED PEN
     Route: 058
     Dates: start: 20220609, end: 2022
  3. ABRILADA [Suspect]
     Active Substance: ADALIMUMAB-AFZB
     Dosage: 40 MG, WEEKLY
     Route: 058
     Dates: start: 2022
  4. PREDNISONE [Concomitant]
     Active Substance: PREDNISONE
     Dosage: 1 DF
     Dates: start: 202205

REACTIONS (16)
  - Spondylitis [Not Recovered/Not Resolved]
  - Condition aggravated [Recovered/Resolved]
  - Pharyngitis [Not Recovered/Not Resolved]
  - Anal haemorrhage [Unknown]
  - Drug ineffective [Not Recovered/Not Resolved]
  - Fatigue [Not Recovered/Not Resolved]
  - Enthesopathy [Not Recovered/Not Resolved]
  - Sacroiliitis [Not Recovered/Not Resolved]
  - Arthralgia [Unknown]
  - Pain in extremity [Unknown]
  - Endometriosis [Unknown]
  - Anal fissure [Unknown]
  - Abdominal pain [Recovered/Resolved]
  - Injection site pain [Not Recovered/Not Resolved]
  - Sensitive skin [Not Recovered/Not Resolved]
  - Off label use [Unknown]

NARRATIVE: CASE EVENT DATE: 20220101
